FAERS Safety Report 13608567 (Version 2)
Quarter: 2017Q2

REPORT INFORMATION
  Report Type: Spontaneous
  Country: JP (occurrence: JP)
  Receive Date: 20170602
  Receipt Date: 20170623
  Transmission Date: 20170830
  Serious: Yes (Death)
  Sender: FDA-Public Use
  Company Number: JP-PFIZER INC-2017238527

PATIENT
  Age: 41 Year
  Sex: Female

DRUGS (14)
  1. VFEND [Suspect]
     Active Substance: VORICONAZOLE
     Dosage: UNK
  2. SULFAMETHOXAZOLE W/TRIMETHOPRIM [Concomitant]
     Active Substance: SULFAMETHOXAZOLE\TRIMETHOPRIM
  3. AMBISOME [Concomitant]
     Active Substance: AMPHOTERICIN B
     Dosage: UNK
  4. ZOSYN [Concomitant]
     Active Substance: PIPERACILLIN SODIUM\TAZOBACTAM SODIUM
     Dosage: UNK
  5. VANCOMYCIN [Concomitant]
     Active Substance: VANCOMYCIN
     Dosage: UNK
  6. ZYVOX [Concomitant]
     Active Substance: LINEZOLID
     Dosage: UNK
  7. ACICLOVIR [Concomitant]
     Active Substance: ACYCLOVIR
     Dosage: UNK
  8. MECOBALAMIN [Concomitant]
     Active Substance: METHYLCOBALAMIN
  9. FUNGUARD [Concomitant]
     Active Substance: MICAFUNGIN SODIUM
     Dosage: UNK
  10. MEROPEN [Concomitant]
     Active Substance: MEROPENEM
     Dosage: UNK
  11. EPERISONE [Concomitant]
     Active Substance: EPERISONE
  12. RABEPRAZOLE [Concomitant]
     Active Substance: RABEPRAZOLE
  13. CEFEPIME [Concomitant]
     Active Substance: CEFEPIME HYDROCHLORIDE
     Dosage: UNK
  14. CUBICIN [Concomitant]
     Active Substance: DAPTOMYCIN
     Dosage: UNK

REACTIONS (1)
  - Death [Fatal]
